FAERS Safety Report 8799919 (Version 1)
Quarter: 2012Q4

REPORT INFORMATION
  Report Type: Spontaneous
  Country: JP (occurrence: None)
  Receive Date: 20120917
  Receipt Date: 20120917
  Transmission Date: 20130627
  Serious: Yes (Other)
  Sender: FDA-Public Use
  Company Number: DSA_59565_2012

PATIENT

DRUGS (5)
  1. FLUOROURACIL (FLUOROURACIL) [Suspect]
     Indication: GASTRIC CANCER
     Route: 040
  2. FLUOROURACIL (FLUOROURACIL) [Suspect]
     Indication: GASTRIC CANCER
     Route: 042
  3. OXALIPLATIN (OXALIPLATIN) [Suspect]
     Indication: GASTRIC CANCER
     Route: 042
  4. LEUCOVORIN [Suspect]
     Indication: GASTRIC CANCER
     Route: 042
  5. ANTINEOPLASTIC AGENTS (UNKNOWN) [Concomitant]

REACTIONS (3)
  - Toxicity to various agents [None]
  - Hyperammonaemia [None]
  - Hepatic failure [None]
